FAERS Safety Report 12177820 (Version 1)
Quarter: 2016Q1

REPORT INFORMATION
  Report Type: Spontaneous
  Country: US (occurrence: None)
  Receive Date: 20160314
  Receipt Date: 20160314
  Transmission Date: 20160526
  Serious: No
  Sender: FDA-Public Use
  Company Number: None

PATIENT
  Sex: Female

DRUGS (1)
  1. TRILEPTAL [Suspect]
     Active Substance: OXCARBAZEPINE
     Dosage: 12ML IN THE MORNING AND 13ML IN
     Route: 048

REACTIONS (3)
  - Drug level below therapeutic [None]
  - Seizure [None]
  - Product quality issue [None]
